FAERS Safety Report 6413339-5 (Version None)
Quarter: 2009Q4

REPORT INFORMATION
  Report Type: 
  Country: None (occurrence: None)
  Receive Date: 20091026
  Receipt Date: 20091018
  Transmission Date: 20100525
  Serious: Yes (Hospitalization)
  Sender: FDA-Public Use
  Company Number: GB-ROCHE-663180

PATIENT
  Sex: Female
  Weight: 64 kg

DRUGS (3)
  1. CAPECITABINE [Suspect]
     Indication: COLON CANCER
     Dosage: LAST DOSE PRIOR SAE: 29 JULY 2009; 1500 MG IN MORNING, 2000 MG IN EVENING, CURRENT CYCLE: 8,
     Route: 048
     Dates: start: 20090218
  2. CAPECITABINE [Suspect]
     Dosage: LAST DOSE PRIOR TO SAE: 08 JUL 2009; PATIENT WAS RECEIVING CYCLE 07
     Route: 048
  3. BEVACIZUMAB [Suspect]
     Indication: COLON CANCER
     Dosage: LAST DOSE PRIOR EVENT: 19 AUGUST 2009. CURRENT CYCLE 9
     Route: 042
     Dates: start: 20090218

REACTIONS (1)
  - BILE DUCT STONE [None]
